FAERS Safety Report 5648847-8 (Version None)
Quarter: 2008Q1

REPORT INFORMATION
  Report Type: 
  Country: None (occurrence: None)
  Receive Date: 20080303
  Receipt Date: 20080303
  Transmission Date: 20080703
  Serious: Yes (Death)
  Sender: FDA-Public Use
  Company Number: None

PATIENT
  Age: 24 Year
  Sex: Male
  Weight: 86.1834 kg

DRUGS (2)
  1. FENTANYL TRANSDERMAL SYSTEM [Suspect]
     Indication: INTERVERTEBRAL DISC DISORDER
     Dosage: 1 PATCH EVERY 48HRS TRANSDERMAL
     Route: 062
     Dates: start: 20050501, end: 20060714
  2. FENTANYL TRANSDERMAL SYSTEM [Suspect]
     Indication: PAIN
     Dosage: 1 PATCH EVERY 48HRS TRANSDERMAL
     Route: 062
     Dates: start: 20050501, end: 20060714

REACTIONS (1)
  - DRUG DISPENSING ERROR [None]
